FAERS Safety Report 24925058 (Version 5)
Quarter: 2025Q2

REPORT INFORMATION
  Report Type: Report from Study
  Country: CO (occurrence: CO)
  Receive Date: 20250204
  Receipt Date: 20250610
  Transmission Date: 20250717
  Serious: Yes (Hospitalization, Other)
  Sender: JOHNSON AND JOHNSON
  Company Number: CO-BAYER-2025A007981

PATIENT
  Age: 57 Year
  Sex: Male

DRUGS (1)
  1. VENTAVIS [Suspect]
     Active Substance: ILOPROST
     Indication: Pulmonary arterial hypertension
     Route: 055
     Dates: start: 20200903

REACTIONS (16)
  - Illness [Unknown]
  - Hypotension [Unknown]
  - Gastritis [Unknown]
  - Peripheral swelling [Unknown]
  - Fluid retention [Unknown]
  - Pain in extremity [Unknown]
  - Skin discolouration [Unknown]
  - Vein rupture [Recovered/Resolved]
  - Intra-abdominal fluid collection [Unknown]
  - Rash macular [Unknown]
  - Skin discolouration [Unknown]
  - Malaise [Unknown]
  - Poor quality sleep [Unknown]
  - Inflammation [Unknown]
  - Inappropriate schedule of product administration [Unknown]
  - Intentional product misuse [Unknown]

NARRATIVE: CASE EVENT DATE: 20250101
